FAERS Safety Report 10280691 (Version 1)
Quarter: 2014Q3

REPORT INFORMATION
  Report Type: Spontaneous
  Country: DE (occurrence: None)
  Receive Date: 20140702
  Receipt Date: 20140702
  Transmission Date: 20150326
  Serious: Yes (Hospitalization, Disabling, Congenital Anomaly)
  Sender: FDA-Public Use
  Company Number: VAL_03192_2014

PATIENT

DRUGS (2)
  1. DEXAMETHASONE. [Suspect]
     Active Substance: DEXAMETHASONE
     Indication: MATERNAL EXPOSURE TIMING UNSPECIFIED
     Dosage: (DF TRANSPLACENTAL)
     Route: 064
     Dates: start: 200410, end: 200502
  2. BROMOCRIPTINE [Suspect]
     Active Substance: BROMOCRIPTINE
     Indication: MATERNAL EXPOSURE TIMING UNSPECIFIED
     Dosage: (DF TRANSPLACENTAL)
     Route: 064
     Dates: start: 200410, end: 200502

REACTIONS (3)
  - Maternal drugs affecting foetus [None]
  - Oesophageal atresia [None]
  - Premature baby [None]
